FAERS Safety Report 13797877 (Version 1)
Quarter: 2017Q3

REPORT INFORMATION
  Report Type: Spontaneous
  Country: US (occurrence: US)
  Receive Date: 20170726
  Receipt Date: 20170726
  Transmission Date: 20171127
  Serious: Yes (Hospitalization)
  Sender: FDA-Public Use
  Company Number: None

PATIENT
  Age: 65 Year
  Sex: Male

DRUGS (1)
  1. WARFARIN [Suspect]
     Active Substance: WARFARIN
     Indication: ATRIAL FIBRILLATION
     Route: 048
     Dates: start: 20150724

REACTIONS (6)
  - Colon adenoma [None]
  - Haemorrhoids [None]
  - Haemoglobin decreased [None]
  - Diverticulum [None]
  - Rectal haemorrhage [None]
  - Haematocrit decreased [None]

NARRATIVE: CASE EVENT DATE: 20170426
